FAERS Safety Report 4996362-7 (Version None)
Quarter: 2006Q2

REPORT INFORMATION
  Report Type: 
  Country: None (occurrence: None)
  Receive Date: 20060509
  Receipt Date: 20060427
  Transmission Date: 20061013
  Serious: Yes (Death, Hospitalization)
  Sender: FDA-Public Use
  Company Number: NSADSS2002031781

PATIENT
  Sex: Female
  Weight: 64.41 kg

DRUGS (12)
  1. DOXIL [Suspect]
     Indication: MULTIPLE MYELOMA
     Route: 041
     Dates: start: 20020702
  2. VINCRISTINE [Suspect]
     Indication: MULTIPLE MYELOMA
     Route: 041
     Dates: start: 20020702
  3. DEXAMETHASONE [Suspect]
     Indication: MULTIPLE MYELOMA
     Route: 048
     Dates: start: 20020702
  4. AMIFOSTINE [Suspect]
     Indication: MULTIPLE MYELOMA
     Route: 041
     Dates: start: 20020702
  5. ANZEMET [Concomitant]
     Route: 048
     Dates: start: 20020702
  6. MS CONTIN [Concomitant]
     Indication: PAIN
     Route: 048
  7. MORPHINE SULFATE [Concomitant]
     Indication: PAIN
     Route: 048
  8. LASIX [Concomitant]
     Route: 048
  9. FLORINEF [Concomitant]
  10. PROCRIT [Concomitant]
  11. VITAMIN B6 [Concomitant]
  12. ZANTAC [Concomitant]

REACTIONS (6)
  - CARDIAC ARREST [None]
  - CARDIOMEGALY [None]
  - CONDITION AGGRAVATED [None]
  - HYPERCOAGULATION [None]
  - PLEURAL EFFUSION [None]
  - SEPSIS [None]
